FAERS Safety Report 10418983 (Version 1)
Quarter: 2014Q2

REPORT INFORMATION
  Report Type: Spontaneous
  Country: US (occurrence: None)
  Receive Date: 20140617
  Receipt Date: 20140617
  Transmission Date: 20141212
  Serious: Yes (Other)
  Sender: FDA-Public Use
  Company Number: USW201306-000072

PATIENT
  Age: 63 Year
  Sex: Male

DRUGS (1)
  1. APOKYN (APOMORPHINE HYDROCHLORIDE) (APOMORPHINE HYDROCHLORIDE) [Suspect]
     Indication: PARKINSON^S DISEASE
     Route: 058
     Dates: start: 20130614

REACTIONS (1)
  - Dyskinesia [None]
